FAERS Safety Report 22345729 (Version 1)
Quarter: 2023Q2

REPORT INFORMATION
  Report Type: Spontaneous
  Country: US (occurrence: US)
  Receive Date: 20230519
  Receipt Date: 20230519
  Transmission Date: 20230722
  Serious: Yes (Death, Other)
  Sender: FDA-Public Use
  Company Number: US-APIL-2314892US

PATIENT
  Sex: Female
  Weight: 139.7 kg

DRUGS (2)
  1. VRAYLAR [Suspect]
     Active Substance: CARIPRAZINE
     Indication: Bipolar I disorder
     Dosage: 4.5 MG
     Route: 048
     Dates: start: 202304, end: 202305
  2. KLONOPIN [Concomitant]
     Active Substance: CLONAZEPAM

REACTIONS (2)
  - Myocardial infarction [Fatal]
  - Hypertension [Unknown]

NARRATIVE: CASE EVENT DATE: 20230401
